FAERS Safety Report 20830365 (Version 1)
Quarter: 2022Q2

REPORT INFORMATION
  Report Type: Report from Study
  Country: IN (occurrence: IN)
  Receive Date: 20220514
  Receipt Date: 20220514
  Transmission Date: 20220721
  Serious: Yes (Other)
  Sender: FDA-Public Use
  Company Number: IN-NOVARTISPH-NVSC2022IN046534

PATIENT
  Age: 64 Year
  Sex: Male

DRUGS (1)
  1. TASIGNA [Suspect]
     Active Substance: NILOTINIB
     Indication: Chronic myeloid leukaemia
     Dosage: 400 MG, BID
     Route: 065
     Dates: start: 20180824, end: 20220502

REACTIONS (3)
  - Diabetes mellitus [Unknown]
  - Tuberculosis [Not Recovered/Not Resolved]
  - Cytogenetic analysis abnormal [Recovered/Resolved]

NARRATIVE: CASE EVENT DATE: 20200701
